FAERS Safety Report 8090948-1 (Version None)
Quarter: 2012Q1

REPORT INFORMATION
  Report Type: 
  Country: None (occurrence: None)
  Receive Date: 20120128
  Receipt Date: 20110802
  Transmission Date: 20120608
  Serious: No
  Sender: FDA-Public Use
  Company Number: US-ABBOTT-11P-163-0842830-00

PATIENT
  Age: 57 Year
  Sex: Male

DRUGS (6)
  1. COMBIVENT [Concomitant]
     Indication: CHRONIC OBSTRUCTIVE PULMONARY DISEASE
  2. HYDROCHLOROTHIAZIDE [Concomitant]
     Indication: HYPERTENSION
  3. PRAVASTATIN [Concomitant]
     Indication: BLOOD CHOLESTEROL INCREASED
  4. HUMIRA [Suspect]
     Indication: PSORIASIS
     Dates: start: 20110413
  5. IPRATROPIUM BROMIDE [Concomitant]
     Indication: CHRONIC OBSTRUCTIVE PULMONARY DISEASE
     Dosage: NEBULIZER, DAILY
  6. ASPIRIN [Concomitant]
     Indication: CARDIOVASCULAR EVENT PROPHYLAXIS

REACTIONS (4)
  - BLOOD DISORDER [None]
  - BLOOD TEST ABNORMAL [None]
  - OXYGEN CONSUMPTION DECREASED [None]
  - TONGUE DISCOLOURATION [None]
